FAERS Safety Report 24723375 (Version 2)
Quarter: 2025Q1

REPORT INFORMATION
  Report Type: Spontaneous
  Country: US (occurrence: US)
  Receive Date: 20241211
  Receipt Date: 20250110
  Transmission Date: 20250409
  Serious: No
  Sender: SANOFI AVENTIS
  Company Number: US-SA-2024SA362941

PATIENT
  Sex: Female

DRUGS (2)
  1. DUPIXENT [Suspect]
     Active Substance: DUPILUMAB
     Indication: Asthma
     Route: 058
  2. FASENRA [Concomitant]
     Active Substance: BENRALIZUMAB
     Dosage: UNK UNK, QW

REACTIONS (6)
  - Injection site pain [Unknown]
  - Dysphonia [Unknown]
  - Nasopharyngitis [Unknown]
  - Illness [Unknown]
  - Dyspnoea [Unknown]
  - Drug ineffective [Unknown]
